FAERS Safety Report 18769833 (Version 2)
Quarter: 2021Q1

REPORT INFORMATION
  Report Type: Spontaneous
  Country: GB (occurrence: GB)
  Receive Date: 20210121
  Receipt Date: 20210211
  Transmission Date: 20210419
  Serious: Yes (Life-Threatening, Hospitalization, Other)
  Sender: FDA-Public Use
  Company Number: GB-MYLANLABS-2021M1000185

PATIENT
  Age: 38 Year
  Sex: Female

DRUGS (2)
  1. BRABIO [Suspect]
     Active Substance: GLATIRAMER ACETATE
     Indication: PRODUCT USED FOR UNKNOWN INDICATION
     Dosage: 120 MILLIGRAM, QW
     Route: 058
     Dates: start: 20200826, end: 20201109
  2. BRABIO [Suspect]
     Active Substance: GLATIRAMER ACETATE
     Dosage: 40 MILLIGRAM, 3XW
     Route: 058
     Dates: start: 20200826, end: 20201109

REACTIONS (6)
  - Abdominal pain [Unknown]
  - Vomiting [Unknown]
  - C-reactive protein increased [Unknown]
  - Pancreatitis [Recovering/Resolving]
  - Lipase increased [Unknown]
  - Pancreatitis necrotising [Recovering/Resolving]

NARRATIVE: CASE EVENT DATE: 202011
